FAERS Safety Report 6262191-X (Version None)
Quarter: 2009Q3

REPORT INFORMATION
  Report Type: 
  Country: None (occurrence: None)
  Receive Date: 20090709
  Receipt Date: 20090707
  Transmission Date: 20100115
  Serious: Yes (Hospitalization)
  Sender: FDA-Public Use
  Company Number: US-MERCK-0905USA03278

PATIENT
  Age: 73 Year
  Sex: Female
  Weight: 68 kg

DRUGS (5)
  1. LESCOL XL [Suspect]
     Indication: LIPIDS INCREASED
     Route: 048
     Dates: start: 20030106, end: 20030203
  2. ZETIA [Concomitant]
     Indication: LOW DENSITY LIPOPROTEIN INCREASED
     Route: 048
     Dates: start: 20030908
  3. ZETIA [Concomitant]
     Indication: BLOOD TRIGLYCERIDES INCREASED
     Route: 048
     Dates: start: 20030908
  4. HYDRODIURIL [Suspect]
     Indication: HYPERTENSION
     Route: 048
     Dates: start: 20010518
  5. VASOTEC [Concomitant]
     Indication: HYPERTENSION
     Route: 048
     Dates: start: 20020101

REACTIONS (2)
  - HEPATOTOXICITY [None]
  - LIVER INJURY [None]
